FAERS Safety Report 5768810-6 (Version None)
Quarter: 2008Q2

REPORT INFORMATION
  Report Type: 
  Country: None (occurrence: None)
  Receive Date: 20080612
  Receipt Date: 20080313
  Transmission Date: 20081010
  Serious: No
  Sender: FDA-Public Use
  Company Number: US-ABBOTT-08P-163-0442441-00

PATIENT
  Sex: Female
  Weight: 77.18 kg

DRUGS (1)
  1. HUMIRA [Suspect]
     Indication: CROHN'S DISEASE
     Route: 058
     Dates: start: 20080201

REACTIONS (2)
  - ACCIDENTAL EXPOSURE [None]
  - PROCEDURAL COMPLICATION [None]
